FAERS Safety Report 6171929-1 (Version None)
Quarter: 2009Q2

REPORT INFORMATION
  Report Type: 
  Country: None (occurrence: None)
  Receive Date: 20090429
  Receipt Date: 20090417
  Transmission Date: 20091009
  Serious: Yes (Other)
  Sender: FDA-Public Use
  Company Number: FR-JNJFOC-20090404487

PATIENT
  Age: 39 Year
  Sex: Male

DRUGS (5)
  1. INFLIXIMAB [Suspect]
     Dosage: WEEK 18
     Route: 042
  2. INFLIXIMAB [Suspect]
     Dosage: WEEK 12
     Route: 042
  3. INFLIXIMAB [Suspect]
     Dosage: WEEK 6
     Route: 042
  4. INFLIXIMAB [Suspect]
     Dosage: WEEK 2
     Route: 042
  5. INFLIXIMAB [Suspect]
     Indication: SWEAT GLAND INFECTION
     Route: 042

REACTIONS (2)
  - DRUG INEFFECTIVE FOR UNAPPROVED INDICATION [None]
  - LEWIS-SUMNER SYNDROME [None]
